FAERS Safety Report 25152132 (Version 2)
Quarter: 2025Q3

REPORT INFORMATION
  Report Type: Report from Study
  Country: US (occurrence: US)
  Receive Date: 20250402
  Receipt Date: 20250921
  Transmission Date: 20251020
  Serious: Yes (Other)
  Sender: JOHNSON AND JOHNSON
  Company Number: US-JNJFOC-20250329951

PATIENT
  Age: 68 Year
  Sex: Female

DRUGS (6)
  1. TREMFYA [Suspect]
     Active Substance: GUSELKUMAB
     Indication: Product used for unknown indication
     Dates: start: 20240815
  2. TREMFYA [Suspect]
     Active Substance: GUSELKUMAB
     Dates: start: 20240816, end: 20241115
  3. DULOXETINE [Concomitant]
     Active Substance: DULOXETINE
     Indication: Depression
  4. NP THYROID [Concomitant]
     Active Substance: LEVOTHYROXINE\LIOTHYRONINE
     Indication: Autoimmune thyroiditis
  5. FISH OIL [Concomitant]
     Active Substance: FISH OIL
     Indication: Cardiac disorder
  6. PROBIOTICS NOS [Concomitant]
     Active Substance: PROBIOTICS NOS
     Indication: Product used for unknown indication

REACTIONS (2)
  - Liver function test increased [Recovered/Resolved]
  - Product dose omission issue [Unknown]

NARRATIVE: CASE EVENT DATE: 20250311
